FAERS Safety Report 20368022 (Version 1)
Quarter: 2022Q1

REPORT INFORMATION
  Report Type: Spontaneous
  Country: DE (occurrence: DE)
  Receive Date: 20220124
  Receipt Date: 20220124
  Transmission Date: 20220423
  Serious: Yes (Other)
  Sender: FDA-Public Use
  Company Number: DE-ALKEM LABORATORIES LIMITED-DE-ALKEM-2022-00148

PATIENT
  Age: 62 Year
  Sex: Male
  Weight: 128 kg

DRUGS (10)
  1. PREGABALIN [Suspect]
     Active Substance: PREGABALIN
     Indication: Product used for unknown indication
     Dosage: 4 DOSE, DAILY
     Route: 065
     Dates: start: 201712
  2. METAMIZOLE [Suspect]
     Active Substance: METAMIZOLE
     Indication: Product used for unknown indication
     Dosage: EVERY ONE DAY
     Route: 065
     Dates: start: 201512
  3. RAMIPRIL [Suspect]
     Active Substance: RAMIPRIL
     Indication: Product used for unknown indication
     Dosage: EVERY ONE DAY
     Route: 065
     Dates: start: 201712
  4. TRAMADOL HYDROCHLORIDE [Suspect]
     Active Substance: TRAMADOL HYDROCHLORIDE
     Indication: Product used for unknown indication
     Dosage: AS NECESSARY
     Route: 065
     Dates: start: 201512
  5. ACC akut 600 MG [Concomitant]
     Indication: Product used for unknown indication
     Dosage: 600 MILLIGRAM, AS NECESSARY
     Route: 065
     Dates: start: 202106, end: 202111
  6. ASPIRIN\PSEUDOEPHEDRINE HYDROCHLORIDE [Concomitant]
     Active Substance: ASPIRIN\PSEUDOEPHEDRINE HYDROCHLORIDE
     Indication: Product used for unknown indication
     Dosage: AS NECESSARY
     Route: 065
     Dates: start: 202108, end: 202108
  7. ASS TAH ratiopharm 100 MG [Concomitant]
     Indication: Product used for unknown indication
     Dosage: 100 MILLIGRAM, QD
     Route: 065
     Dates: start: 201512
  8. ASPIRIN PLUS C [Concomitant]
     Active Substance: ASCORBIC ACID\ASPIRIN
     Indication: Product used for unknown indication
     Dosage: AS NECESSARY
     Route: 065
     Dates: start: 201312, end: 202106
  9. Atorvastatin AL 20 mg Filmtabletten [Concomitant]
     Indication: Product used for unknown indication
     Dosage: 20 MILLIGRAM, QD
     Route: 065
     Dates: start: 201712
  10. Velmetia 50 mg/1000 mg film-coated [Concomitant]
     Indication: Product used for unknown indication
     Dosage: EVERY ONE DAY
     Route: 065
     Dates: start: 201312

REACTIONS (4)
  - Dyspepsia [Not Recovered/Not Resolved]
  - Neuralgia [Not Recovered/Not Resolved]
  - Deafness neurosensory [Not Recovered/Not Resolved]
  - Hypothalamo-pituitary disorder [Not Recovered/Not Resolved]

NARRATIVE: CASE EVENT DATE: 20171201
